FAERS Safety Report 7319760-5 (Version None)
Quarter: 2011Q1

REPORT INFORMATION
  Report Type: 
  Country: None (occurrence: None)
  Receive Date: 20110228
  Receipt Date: 20100910
  Transmission Date: 20110831
  Serious: Yes (Other)
  Sender: FDA-Public Use
  Company Number: A0880663A

PATIENT
  Age: 22 Year
  Sex: Female

DRUGS (3)
  1. LAMICTAL [Suspect]
     Indication: BIPOLAR DISORDER
     Dosage: 300MG PER DAY
     Route: 048
  2. TENEX [Concomitant]
  3. VYVANSE [Concomitant]

REACTIONS (3)
  - LYMPHADENOPATHY [None]
  - HYPOMANIA [None]
  - DRUG INEFFECTIVE [None]
